FAERS Safety Report 9222030 (Version 4)
Quarter: 2013Q4

REPORT INFORMATION
  Report Type: Spontaneous
  Country: US (occurrence: US)
  Receive Date: 20130410
  Receipt Date: 20131112
  Transmission Date: 20140711
  Serious: Yes (Other)
  Sender: FDA-Public Use
  Company Number: US-PFIZER INC-2013109781

PATIENT
  Age: 58 Year
  Sex: Female
  Weight: 57.14 kg

DRUGS (4)
  1. EFFEXOR XR [Suspect]
     Indication: DEPRESSION
     Dosage: 75 MG, DAILY
     Route: 048
  2. EFFEXOR XR [Suspect]
     Dosage: 150 MG ONCE DAILY
     Route: 048
  3. LISINOPRIL [Suspect]
     Indication: BLOOD PRESSURE INCREASED
     Dosage: 30 MG, DAILY
     Route: 048
     Dates: start: 2013
  4. METOPROLOL TARTRATE [Suspect]
     Indication: BLOOD PRESSURE INCREASED
     Dosage: 100 MG, DAILY
     Route: 048
     Dates: start: 2013

REACTIONS (2)
  - Blood pressure increased [Unknown]
  - Osteoporosis [Unknown]
